FAERS Safety Report 12978143 (Version 2)
Quarter: 2016Q4

REPORT INFORMATION
  Report Type: Spontaneous
  Country: US (occurrence: US)
  Receive Date: 20161128
  Receipt Date: 20161212
  Transmission Date: 20170207
  Serious: No
  Sender: FDA-Public Use
  Company Number: US-PFIZER INC-2016488042

PATIENT
  Age: 70 Year
  Sex: Female
  Weight: 81.65 kg

DRUGS (18)
  1. TYLENOL [Concomitant]
     Active Substance: ACETAMINOPHEN
     Dosage: 650 MG, AS NEEDED (TAKE 2 TABLETS BY MOUTH EVERY FOUR HOURS AS NEEDED)
     Route: 048
  2. KRILL OIL [Concomitant]
     Active Substance: DIETARY SUPPLEMENT
     Dosage: 500 MG, 1X/DAY
     Route: 048
  3. K-DUR [Concomitant]
     Active Substance: POTASSIUM CHLORIDE
     Dosage: 10 MEQ, ALTERNATE DAY (EVERY FORTY EIGHT HOURS)
     Route: 048
  4. ACTONEL [Concomitant]
     Active Substance: RISEDRONATE SODIUM
     Dosage: 150 MG, (TAKE 150MG BY MOUTH EVERY 4 WEEKS)
     Route: 048
  5. AMLODIPINE [Concomitant]
     Active Substance: AMLODIPINE BESYLATE
     Indication: HYPERTENSION
     Dosage: 2.5 MG, 1X/DAY
  6. LASIX [Concomitant]
     Active Substance: FUROSEMIDE
     Dosage: 20 MG, ALTERNATE DAY (TAKE 1 TABLET BY MOUTH EVERY FORTY-EIGHT HOURS WITH POTASSIUM CHLORIDE)
     Route: 048
  7. LUTEIN [Concomitant]
     Active Substance: LUTEIN
     Dosage: 1 DF, 1X/DAY
     Route: 048
  8. METOPROLOL. [Concomitant]
     Active Substance: METOPROLOL
     Indication: HYPERTENSION
     Dosage: 100 MG, 1X/DAY
  9. NORVASC [Concomitant]
     Active Substance: AMLODIPINE BESYLATE
     Dosage: 2.5 MG, 1X/DAY
     Route: 048
  10. SIMVASTATIN. [Concomitant]
     Active Substance: SIMVASTATIN
     Indication: BLOOD CHOLESTEROL INCREASED
     Dosage: 20 MG, UNK
  11. SUTENT [Suspect]
     Active Substance: SUNITINIB MALATE
     Indication: EXTRASKELETAL MYXOID CHONDROSARCOMA
     Dosage: 50 MG, CYCLIC (TAKE 1 CAPSULE BY MOUTH ONCE DAILY FOR 4 WEEKS, THEN TAKE 2 WEEKS OFF EVERY 6 WEEKS)
     Route: 048
     Dates: start: 20161028
  12. SUTENT [Suspect]
     Active Substance: SUNITINIB MALATE
     Dosage: 50 MG, 1X/DAY
     Route: 048
  13. PEPCID [Concomitant]
     Active Substance: FAMOTIDINE
     Indication: CARDIAC DISORDER
     Dosage: 20 MG, AS NEEDED
     Route: 048
  14. MONOPRIL [Concomitant]
     Active Substance: FOSINOPRIL SODIUM
     Dosage: 40 MG, 1X/DAY
     Route: 048
  15. XALATAN [Concomitant]
     Active Substance: LATANOPROST
     Dosage: 0.005%, 1X/DAY (1 DROP IN TO BOTH EYES ONCE DAILY IN THE EVENING)
  16. CLARITIN [Concomitant]
     Active Substance: LORATADINE
     Dosage: 10 MG, 1X/DAY
     Route: 048
  17. TOPROL XL [Concomitant]
     Active Substance: METOPROLOL SUCCINATE
     Dosage: 100 MG, 1X/DAY
     Route: 048
  18. ZOCOR [Concomitant]
     Active Substance: SIMVASTATIN
     Dosage: 20 MG, 1X/DAY
     Route: 048

REACTIONS (3)
  - Product use issue [Unknown]
  - Nausea [Unknown]
  - Malaise [Recovered/Resolved]

NARRATIVE: CASE EVENT DATE: 20161028
